FAERS Safety Report 7825744-0 (Version None)
Quarter: 2011Q4

REPORT INFORMATION
  Report Type: 
  Country: None (occurrence: None)
  Receive Date: 20111019
  Receipt Date: 20111011
  Transmission Date: 20120403
  Serious: Yes (Other)
  Sender: FDA-Public Use
  Company Number: PHHY2011CA48490

PATIENT
  Sex: Female

DRUGS (4)
  1. ALBUTEROL [Concomitant]
  2. LIVEROIL [Concomitant]
  3. ZOLEDRONOC ACID [Suspect]
     Indication: OSTEOPOROSIS
     Dosage: 5 MG, UNK
     Route: 042
     Dates: start: 20101129
  4. NEXIUM [Concomitant]

REACTIONS (3)
  - PAIN [None]
  - TENDON PAIN [None]
  - TENDON INJURY [None]
